FAERS Safety Report 9854024 (Version 3)
Quarter: 2014Q1

REPORT INFORMATION
  Report Type: Report from Study
  Country: PT (occurrence: PT)
  Receive Date: 20140129
  Receipt Date: 20140214
  Transmission Date: 20141002
  Serious: Yes (Death, Other)
  Sender: FDA-Public Use
  Company Number: PT-BAXTER-2014BAX003211

PATIENT
  Age: 58 Year
  Sex: Male

DRUGS (1)
  1. EXTRANEAL 75MG/ML - SACO - 5 UNIDADE(S) - 2000 ML [Suspect]
     Indication: PERITONEAL DIALYSIS
     Route: 033
     Dates: end: 20140106

REACTIONS (2)
  - Death [Fatal]
  - Cardiac failure [Unknown]
